FAERS Safety Report 18179914 (Version 1)
Quarter: 2020Q3

REPORT INFORMATION
  Report Type: Spontaneous
  Country: US (occurrence: US)
  Receive Date: 20200820
  Receipt Date: 20200820
  Transmission Date: 20201103
  Serious: No
  Sender: FDA-Public Use
  Company Number: None

PATIENT

DRUGS (1)
  1. ESCITALOPRAM [Suspect]
     Active Substance: ESCITALOPRAM OXALATE
     Dosage: ?          QUANTITY:90 TABLETS?
     Route: 048
     Dates: start: 20200706, end: 20200725

REACTIONS (4)
  - Irritability [None]
  - Product quality issue [None]
  - Condition aggravated [None]
  - Anxiety [None]
